FAERS Safety Report 6127446-8 (Version None)
Quarter: 2009Q1

REPORT INFORMATION
  Report Type: 
  Country: None (occurrence: None)
  Receive Date: 20090323
  Receipt Date: 20090312
  Transmission Date: 20090719
  Serious: Yes (Death)
  Sender: FDA-Public Use
  Company Number: US-RANBAXY-2009RR-22672

PATIENT
  Age: 36 Year
  Sex: Female

DRUGS (12)
  1. ACETAMINOPHEN [Suspect]
  2. CELEXA [Suspect]
  3. DEXTROPROPOXYPHENE [Suspect]
  4. SOMA [Suspect]
  5. RANCEPINE [Suspect]
  6. ZYPREXA [Suspect]
     Dosage: 15 MG, QD
  7. ATORVASTATIN [Concomitant]
  8. LANSOPRAZOLE [Concomitant]
  9. FEXOFENADINE [Concomitant]
  10. METRONIDAZOLE [Concomitant]
  11. CLONAZEPAM [Concomitant]
  12. BUSPIRONE HCL [Suspect]

REACTIONS (1)
  - DRUG TOXICITY [None]
